FAERS Safety Report 5448330-9 (Version None)
Quarter: 2007Q3

REPORT INFORMATION
  Report Type: 
  Country: None (occurrence: None)
  Receive Date: 20070911
  Receipt Date: 20070906
  Transmission Date: 20080115
  Serious: Yes (Death)
  Sender: FDA-Public Use
  Company Number: GR-ABBOTT-07P-066-0416149-00

PATIENT
  Age: 76 Year
  Sex: Male
  Weight: 36.32 kg

DRUGS (12)
  1. CLARITHROMYCIN [Suspect]
     Indication: BACTERAEMIA
     Route: 042
     Dates: start: 20070821, end: 20070824
  2. CARVEDILOL [Concomitant]
     Indication: HYPERTENSION
     Route: 048
     Dates: start: 20070821, end: 20070831
  3. ENOXAPARIN SODIUM [Concomitant]
     Indication: THROMBOSIS PROPHYLAXIS
     Route: 058
     Dates: start: 20070821, end: 20070831
  4. BREVA [Concomitant]
     Indication: RESPIRATORY DISTRESS
     Route: 055
     Dates: start: 20070821, end: 20070823
  5. FENTANYL [Concomitant]
     Indication: ANALGESIA
     Dosage: 50 MG/2DAYS
     Dates: start: 20070821, end: 20070828
  6. OMEPRAZOLE [Concomitant]
     Indication: GASTRITIS PROPHYLAXIS
     Route: 042
     Dates: start: 20070821, end: 20070831
  7. MEROPENEM [Concomitant]
     Indication: BACTERAEMIA
     Route: 042
     Dates: start: 20070821, end: 20070831
  8. IPRATROPIUM BROMIDE [Concomitant]
     Indication: RESPIRATORY DISTRESS
     Route: 055
     Dates: start: 20070823, end: 20070831
  9. CIPROFLOXACIN [Concomitant]
     Indication: BACTERAEMIA
     Route: 042
     Dates: start: 20070823, end: 20070825
  10. PETHIDINE [Concomitant]
     Indication: ANALGESIA
     Route: 030
     Dates: start: 20070825, end: 20070830
  11. COLISTIN SULFATE [Concomitant]
     Indication: BACTERAEMIA
     Dosage: 6MIU
     Route: 042
     Dates: start: 20070825, end: 20070831
  12. VANCOMYCIN HYDROCHLORIDE [Concomitant]
     Indication: BACTERAEMIA
     Route: 042
     Dates: start: 20070826, end: 20070831

REACTIONS (1)
  - DEATH [None]
